FAERS Safety Report 11779316 (Version 2)
Quarter: 2015Q4

REPORT INFORMATION
  Report Type: Spontaneous
  Country: JP (occurrence: JP)
  Receive Date: 20151125
  Receipt Date: 20151218
  Transmission Date: 20160304
  Serious: Yes (Life-Threatening)
  Sender: FDA-Public Use
  Company Number: JP-GE HEALTHCARE MEDICAL DIAGNOSTICS-OMPQ-PR-1511S-3080

PATIENT
  Age: 36 Year
  Sex: Male
  Weight: 92 kg

DRUGS (8)
  1. REZALTAS COMBINATION TABLETS HD [Concomitant]
     Dates: start: 20150612
  2. OLMETEC [Concomitant]
     Active Substance: OLMESARTAN MEDOXOMIL
     Dates: start: 20150612
  3. OMNIPAQUE [Suspect]
     Active Substance: IOHEXOL
     Indication: THERAPEUTIC PROCEDURE
  4. CEFAMEZIN [Concomitant]
     Active Substance: CEFAZOLIN
     Dates: start: 20151006, end: 20151006
  5. OMNIPAQUE [Suspect]
     Active Substance: IOHEXOL
     Indication: PRODUCT USED FOR UNKNOWN INDICATION
     Dosage: DOSE NOT REPORTED
     Route: 042
     Dates: start: 20151006, end: 20151006
  6. PLETAAL [Concomitant]
     Active Substance: CILOSTAZOL
     Dates: start: 20150612
  7. PARIET [Concomitant]
     Active Substance: RABEPRAZOLE SODIUM
     Dates: start: 20150612
  8. TENORMIN [Concomitant]
     Active Substance: ATENOLOL
     Dates: start: 20150612

REACTIONS (1)
  - Anaphylactic shock [Recovered/Resolved]

NARRATIVE: CASE EVENT DATE: 20151006
